FAERS Safety Report 5588491-4 (Version None)
Quarter: 2008Q1

REPORT INFORMATION
  Report Type: 
  Country: None (occurrence: None)
  Receive Date: 20080111
  Receipt Date: 20080102
  Transmission Date: 20080703
  Serious: Yes (Hospitalization)
  Sender: FDA-Public Use
  Company Number: GB-ROCHE-539611

PATIENT
  Age: 56 Year
  Sex: Female
  Weight: 133.4 kg

DRUGS (2)
  1. ORLISTAT [Suspect]
     Indication: OBESITY
     Route: 048
     Dates: start: 20070513, end: 20071225
  2. UNSPECIFIED MEDICATIONS [Concomitant]

REACTIONS (1)
  - HIATUS HERNIA [None]
